FAERS Safety Report 24565295 (Version 2)
Quarter: 2024Q4

REPORT INFORMATION
  Report Type: Spontaneous
  Country: CH (occurrence: CH)
  Receive Date: 20241030
  Receipt Date: 20241105
  Transmission Date: 20250115
  Serious: Yes (Other)
  Sender: PFIZER
  Company Number: None

PATIENT
  Age: 52 Year
  Sex: Male
  Weight: 69 kg

DRUGS (24)
  1. PANTOZOL [Interacting]
     Active Substance: PANTOPRAZOLE SODIUM
     Dosage: 40 MG, EVERY 12 HOURS
     Route: 048
  2. ALDACTONE [Interacting]
     Active Substance: SPIRONOLACTONE
     Dosage: 25 MG, 1X/DAY
     Route: 048
     Dates: end: 20240806
  3. TORSEMIDE [Interacting]
     Active Substance: TORSEMIDE
     Dosage: 10 MG, EVERY 12 HOURS
     Route: 048
     Dates: end: 202408
  4. TORSEMIDE [Interacting]
     Active Substance: TORSEMIDE
     Dosage: 5 MG, SINGLE
     Route: 048
     Dates: start: 20240806, end: 20240806
  5. VALPROATE SODIUM [Interacting]
     Active Substance: VALPROATE SODIUM
     Dosage: 10 ML, EVERY 12 HOURS, 60 MG VALPROATE PER ML
     Route: 048
  6. BISOPROLOL [Concomitant]
     Active Substance: BISOPROLOL\BISOPROLOL FUMARATE
     Dosage: 2.5 MG, 1X/DAY
     Route: 048
  7. SYMBICORT [Concomitant]
     Active Substance: BUDESONIDE\FORMOTEROL FUMARATE DIHYDRATE
     Dosage: 2 DF, EVERY 12 HOURS, 200 UG BUDESONIDE/ 6 UG FORMOTEROL PER SPRAY SHOT
     Route: 055
  8. CETIRIZINE HYDROCHLORIDE [Concomitant]
     Active Substance: CETIRIZINE HYDROCHLORIDE
     Indication: Hypersensitivity
     Dosage: 10 MG, AS NECESSARY, MAX. 1X/DAY
     Route: 048
  9. DUTASTERIDE\TAMSULOSIN [Concomitant]
     Active Substance: DUTASTERIDE\TAMSULOSIN
     Dosage: 1 DF, 1X/DAY, 0.5 MG DUTASTERIDE/ 0.4 MG TAMSULOSIN PER TABLET
     Route: 048
  10. FLUTICASONE FUROATE\VILANTEROL TRIFENATATE [Concomitant]
     Active Substance: FLUTICASONE FUROATE\VILANTEROL TRIFENATATE
     Dosage: 1 DF, 1X/DAY, 184 UG FLUTICASONE FUROATE/ 22 UG VILANTEROL PER SPRAY SHOT
     Route: 055
  11. DUPHALAC [Concomitant]
     Active Substance: LACTULOSE
     Dosage: 15 ML, EVERY 12 HOURS, 10.01 G LACTULOSE PER 15 ML
     Route: 048
  12. NOVALGIN (METAMIZOLE SODIUM) [Concomitant]
     Active Substance: METAMIZOLE SODIUM
     Dosage: 20 GTT DROPS, Q12H
     Route: 048
  13. NOVALGIN (METAMIZOLE SODIUM) [Concomitant]
     Active Substance: METAMIZOLE SODIUM
     Dosage: 20 GTT DROPS
     Route: 048
  14. METOPROLOL SUCCINATE [Concomitant]
     Active Substance: METOPROLOL SUCCINATE
     Dosage: 25 MG, AS NECESSARY, MAX. 1X/DAY
     Route: 048
  15. SODIUM CHLORIDE [Concomitant]
     Active Substance: SODIUM CHLORIDE
     Dosage: 1000 MG, EVERY 8 HOURS
     Route: 048
  16. VENTOLIN [Concomitant]
     Active Substance: ALBUTEROL SULFATE
     Dosage: 200 UG, 1X/DAY, 100 UG SALBUTAMOL PER SPRAY SHOT
     Route: 055
  17. THIAMINE HYDROCHLORIDE [Concomitant]
     Active Substance: THIAMINE HYDROCHLORIDE
     Dosage: 300 MG, 1X/DAY
     Route: 048
  18. BECOZYM-F [Concomitant]
     Dosage: 1 DF, 1X/DAY
     Route: 048
  19. ZUCLOPENTHIXOL HYDROCHLORIDE [Concomitant]
     Active Substance: ZUCLOPENTHIXOL HYDROCHLORIDE
     Dosage: 30 GTT DROPS, Q12H
     Route: 048
  20. ZUCLOPENTHIXOL HYDROCHLORIDE [Concomitant]
     Active Substance: ZUCLOPENTHIXOL HYDROCHLORIDE
     Dosage: 20 GTT DROPS
     Route: 048
  21. LISINOPRIL [Concomitant]
     Active Substance: LISINOPRIL
     Dosage: 10 MG, 1X/DAY
     Route: 048
  22. SODIUM PICOSULFATE [Concomitant]
     Active Substance: SODIUM PICOSULFATE
     Dosage: 10 GTT DROPS
     Route: 048
  23. AMLODIPINE BESYLATE [Concomitant]
     Active Substance: AMLODIPINE BESYLATE
     Dosage: 5 MG, AS NECESSARY
     Route: 048
  24. QUETIAPINE FUMARATE [Concomitant]
     Active Substance: QUETIAPINE FUMARATE
     Dosage: 25 MG, AS NECESSARY, MAX. 100 MG/ DAY
     Route: 048

REACTIONS (3)
  - Drug interaction [Unknown]
  - Hyponatraemia [Recovering/Resolving]
  - Hyponatraemia [Recovering/Resolving]

NARRATIVE: CASE EVENT DATE: 20240101
